FAERS Safety Report 6662545-3 (Version None)
Quarter: 2010Q1

REPORT INFORMATION
  Report Type: 
  Country: None (occurrence: None)
  Receive Date: 20100329
  Receipt Date: 20100322
  Transmission Date: 20100710
  Serious: Yes (Life-Threatening, Hospitalization)
  Sender: FDA-Public Use
  Company Number: 2010SP005365

PATIENT
  Age: 50 Year
  Sex: Male

DRUGS (3)
  1. NANDROLONE DECANOATE [Suspect]
     Indication: MUSCLE BUILDING THERAPY
  2. ERYTHROPOIETIN (ERYTHROPOIETIN) [Suspect]
     Indication: MUSCLE BUILDING THERAPY
  3. NANDROLONE (NANDROLONE) [Suspect]
     Indication: MUSCLE BUILDING THERAPY

REACTIONS (11)
  - ANURIA [None]
  - BLOOD PRESSURE SYSTOLIC DECREASED [None]
  - CARDIOGENIC SHOCK [None]
  - DEPRESSED LEVEL OF CONSCIOUSNESS [None]
  - DRUG ABUSE [None]
  - HAEMOGLOBIN INCREASED [None]
  - HEART TRANSPLANT [None]
  - HYPERHIDROSIS [None]
  - MYOCARDIAL INFARCTION [None]
  - POST PROCEDURAL COMPLICATION [None]
  - TACHYCARDIA [None]
